FAERS Safety Report 5130645-5 (Version None)
Quarter: 2006Q4

REPORT INFORMATION
  Report Type: 
  Country: None (occurrence: None)
  Receive Date: 20061019
  Receipt Date: 20061006
  Transmission Date: 20070319
  Serious: Yes (Hospitalization, Other)
  Sender: FDA-Public Use
  Company Number: US-AMGEN-US196070

PATIENT
  Age: 74 Year
  Sex: Male

DRUGS (1)
  1. ARANESP [Suspect]
     Indication: ANAEMIA OF MALIGNANT DISEASE
     Route: 058

REACTIONS (5)
  - ANGIONEUROTIC OEDEMA [None]
  - DYSPHAGIA [None]
  - GENERALISED ERYTHEMA [None]
  - HYPERSENSITIVITY [None]
  - SWELLING [None]
